FAERS Safety Report 15325339 (Version 2)
Quarter: 2018Q4

REPORT INFORMATION
  Report Type: Report from Study
  Country: CA (occurrence: CA)
  Receive Date: 20180828
  Receipt Date: 20181001
  Transmission Date: 20190204
  Serious: Yes (Hospitalization)
  Sender: FDA-Public Use
  Company Number: CA-JNJFOC-20180815032

PATIENT
  Age: 33 Year
  Sex: Male
  Weight: 114.2 kg

DRUGS (1)
  1. REMICADE [Suspect]
     Active Substance: INFLIXIMAB
     Indication: CROHN^S DISEASE
     Dosage: STRENGTH = 100 MG
     Route: 042
     Dates: start: 20160414, end: 20180810

REACTIONS (5)
  - Drug specific antibody present [Unknown]
  - Product use issue [Unknown]
  - Off label use [Unknown]
  - Gastrointestinal obstruction [Unknown]
  - Small intestinal stenosis [Not Recovered/Not Resolved]

NARRATIVE: CASE EVENT DATE: 20160414
